FAERS Safety Report 23741905 (Version 1)
Quarter: 2024Q2

REPORT INFORMATION
  Report Type: Spontaneous
  Country: US (occurrence: None)
  Receive Date: 20240412
  Receipt Date: 20240412
  Transmission Date: 20240716
  Serious: Yes (Other)
  Sender: FDA-Public Use
  Company Number: None

PATIENT
  Age: 61 Year
  Sex: Male

DRUGS (1)
  1. SKYRIZI [Suspect]
     Active Substance: RISANKIZUMAB-RZAA
     Indication: Crohn^s disease
     Dosage: OTHER FREQUENCY : EVERY 8 WEEKS;?
     Dates: start: 20231107

REACTIONS (10)
  - Infusion related reaction [None]
  - Psoriasis [None]
  - Blood pressure increased [None]
  - Hypoaesthesia [None]
  - Hypoaesthesia oral [None]
  - Hypoaesthesia [None]
  - Arthralgia [None]
  - Alopecia [None]
  - Dyspnoea [None]
  - Throat irritation [None]
